FAERS Safety Report 20947766 (Version 1)
Quarter: 2022Q2

REPORT INFORMATION
  Report Type: Spontaneous
  Country: FR (occurrence: FR)
  Receive Date: 20220611
  Receipt Date: 20220611
  Transmission Date: 20220720
  Serious: Yes (Hospitalization)
  Sender: FDA-Public Use
  Company Number: None

PATIENT
  Age: 70 Year
  Sex: Male
  Weight: 120 kg

DRUGS (17)
  1. METFORMIN [Interacting]
     Active Substance: METFORMIN HYDROCHLORIDE
     Indication: Type 2 diabetes mellitus
     Dosage: THERAPY START DATE : ASKU , UNIT DOSE : 1500 MG , FREQUENCY TIME : 1 DAY
     Route: 048
     Dates: end: 20220119
  2. REPAGLINIDE [Interacting]
     Active Substance: REPAGLINIDE
     Indication: Type 2 diabetes mellitus
     Dosage: THERAPY START DATE : ASKU , UNIT DOSE : 3 MG , FREQUENCY TIME : 1 DAY , STRENGTH : 1 MG
     Route: 048
     Dates: end: 20220119
  3. DAPAGLIFLOZIN [Interacting]
     Active Substance: DAPAGLIFLOZIN
     Indication: Type 2 diabetes mellitus
     Dosage: THERAPY START DATE : ASKU , FREQUENCY TIME : 1 DAY , UNIT DOSE : 10 MG , STRENGTH : 10 MG
     Route: 048
  4. ALLOPURINOL [Concomitant]
     Active Substance: ALLOPURINOL
  5. ENTRESTO [Concomitant]
     Active Substance: SACUBITRIL\VALSARTAN
  6. HERBALS\SAW PALMETTO [Concomitant]
     Active Substance: HERBALS\SAW PALMETTO
     Dosage: STRENGTH : 160 MG
  7. SOTALOL [Concomitant]
     Active Substance: SOTALOL
     Dosage: SCORED TABLET , STRENGTH : 160 MG
  8. TRIMEBUTINE MALEATE [Concomitant]
     Active Substance: TRIMEBUTINE MALEATE
  9. EZETIMIBE [Concomitant]
     Active Substance: EZETIMIBE
  10. ESOMEPRAZOLE [Concomitant]
     Active Substance: ESOMEPRAZOLE
     Dosage: STRENGTH : 40 MG
  11. XARELTO [Concomitant]
     Active Substance: RIVAROXABAN
     Dosage: STRENGTH : 15 MG
  12. LERCANIDIPINE [Concomitant]
     Active Substance: LERCANIDIPINE
     Dosage: STRENGTH : 10 MG
  13. FUROSEMIDE [Concomitant]
     Active Substance: FUROSEMIDE
  14. ASPIRIN\CLOPIDOGREL [Concomitant]
     Active Substance: ASPIRIN\CLOPIDOGREL
     Dosage: STRENGTH : 75 MG/75 MG
  15. POTASSIUM CHLORIDE [Concomitant]
     Active Substance: POTASSIUM CHLORIDE
     Dosage: STRENGTH : 600 MG
  16. DESLORATADINE [Concomitant]
     Active Substance: DESLORATADINE
  17. ZALDIAR [Concomitant]
     Active Substance: ACETAMINOPHEN\TRAMADOL HYDROCHLORIDE

REACTIONS (2)
  - Hypoglycaemia [Recovered/Resolved]
  - Drug interaction [Unknown]

NARRATIVE: CASE EVENT DATE: 20220118
